FAERS Safety Report 13007255 (Version 1)
Quarter: 2016Q4

REPORT INFORMATION
  Report Type: Spontaneous
  Country: FR (occurrence: FR)
  Receive Date: 20161207
  Receipt Date: 20161207
  Transmission Date: 20170207
  Serious: Yes (Death, Hospitalization)
  Sender: FDA-Public Use
  Company Number: FR-009507513-1612FRA001699

PATIENT
  Sex: Female

DRUGS (13)
  1. COTELLIC [Suspect]
     Active Substance: COBIMETINIB
     Indication: METASTATIC MALIGNANT MELANOMA
     Dosage: UNK
     Route: 048
     Dates: start: 20150817, end: 20160808
  2. EPIRUBICIN [Suspect]
     Active Substance: EPIRUBICIN
     Dosage: CYCLE 2
     Route: 042
     Dates: start: 20160405, end: 20160405
  3. CYCLOPHOSPHAMIDE. [Suspect]
     Active Substance: CYCLOPHOSPHAMIDE
     Dosage: CYCLE 2
     Route: 042
     Dates: start: 20160405, end: 20160405
  4. FLUOROURACIL. [Suspect]
     Active Substance: FLUOROURACIL
     Dosage: CYCLE 3
     Route: 042
     Dates: start: 20160502, end: 20160502
  5. FLUOROURACIL. [Suspect]
     Active Substance: FLUOROURACIL
     Dosage: CYCLE 2
     Route: 042
     Dates: start: 20160405, end: 20160405
  6. EPIRUBICIN [Suspect]
     Active Substance: EPIRUBICIN
     Indication: BREAST CANCER
     Dosage: CYCLE 1
     Route: 042
     Dates: start: 20160315, end: 20160315
  7. FLUOROURACIL. [Suspect]
     Active Substance: FLUOROURACIL
     Indication: BREAST CANCER
     Dosage: CYCLE 1
     Route: 042
     Dates: start: 20160315, end: 20160315
  8. CYCLOPHOSPHAMIDE. [Suspect]
     Active Substance: CYCLOPHOSPHAMIDE
     Dosage: CYCLE 3
     Route: 042
     Dates: start: 20160502, end: 20160502
  9. KEYTRUDA [Suspect]
     Active Substance: PEMBROLIZUMAB
     Dosage: CYCLE 2
     Route: 042
     Dates: start: 20160921, end: 20160921
  10. CYCLOPHOSPHAMIDE. [Suspect]
     Active Substance: CYCLOPHOSPHAMIDE
     Indication: BREAST CANCER
     Dosage: CYCLE 1
     Route: 042
     Dates: start: 20160315, end: 20160315
  11. KEYTRUDA [Suspect]
     Active Substance: PEMBROLIZUMAB
     Indication: BREAST CANCER METASTATIC
     Dosage: CYCLE 1
     Route: 042
     Dates: start: 20160831, end: 20160831
  12. ZELBORAF [Suspect]
     Active Substance: VEMURAFENIB
     Indication: METASTATIC MALIGNANT MELANOMA
     Dosage: UNK
     Route: 048
     Dates: start: 20150817, end: 20160826
  13. EPIRUBICIN [Suspect]
     Active Substance: EPIRUBICIN
     Dosage: CYCLE 3
     Route: 042
     Dates: start: 20160502, end: 20160502

REACTIONS (2)
  - Intracranial pressure increased [Fatal]
  - Retinal vein occlusion [Recovered/Resolved]

NARRATIVE: CASE EVENT DATE: 2016
